FAERS Safety Report 15110952 (Version 9)
Quarter: 2018Q4

REPORT INFORMATION
  Report Type: Spontaneous
  Country: CA (occurrence: CA)
  Receive Date: 20180705
  Receipt Date: 20181121
  Transmission Date: 20190204
  Serious: Yes (Other)
  Sender: FDA-Public Use
  Company Number: CA-CELLTRION INC.-2018CA018270

PATIENT

DRUGS (14)
  1. INFLECTRA [Suspect]
     Active Substance: INFLIXIMAB-DYYB
     Dosage: 450 MG, EVERY 8 WEEKS
     Route: 042
     Dates: start: 20180221
  2. COUMADIN [Concomitant]
     Active Substance: WARFARIN SODIUM
     Dosage: UNK
     Dates: start: 2010
  3. INFLECTRA [Suspect]
     Active Substance: INFLIXIMAB-DYYB
     Dosage: 340 MG, CYCLIC(EVERY 0, 2,6 WEEKS THEN EVERY 8 WEEKS
     Route: 042
     Dates: start: 20180530
  4. ACZONE [Concomitant]
     Active Substance: DAPSONE
     Dosage: UNK
  5. INFLECTRA [Suspect]
     Active Substance: INFLIXIMAB-DYYB
     Indication: CROHN^S DISEASE
     Dosage: 340 MG, CYCLIC AT 0,2,6 WEEKS THEN EVERY 8 WEEKS
     Route: 042
     Dates: start: 20180221
  6. LEVOTHYROXINE. [Concomitant]
     Active Substance: LEVOTHYROXINE
     Dosage: UNK
     Dates: start: 1991
  7. VENOFER [Concomitant]
     Active Substance: IRON SUCROSE
     Dosage: UNK
     Dates: start: 201708
  8. INFLECTRA [Suspect]
     Active Substance: INFLIXIMAB-DYYB
     Dosage: 450 MG, CYCLIC ( THEN EVERY 8 WEEKS)
     Route: 042
     Dates: start: 20181107
  9. PANTOPRAZOLE [Concomitant]
     Active Substance: PANTOPRAZOLE
     Dosage: UNK
     Dates: start: 2010
  10. PROTOPIC [Concomitant]
     Active Substance: TACROLIMUS
     Dosage: UNK
  11. MEDROXY [Concomitant]
     Active Substance: MEDROXYPROGESTERONE ACETATE
     Dosage: UNK
     Dates: start: 201704
  12. INFLECTRA [Suspect]
     Active Substance: INFLIXIMAB-DYYB
     Dosage: 340 MG, CYCLIC(EVERY 0, 2,6 WEEKS THEN EVERY 8 WEEKS
     Route: 042
     Dates: start: 20180307
  13. INFLECTRA [Suspect]
     Active Substance: INFLIXIMAB-DYYB
     Dosage: 450 MG, CYCLIC ( THEN EVERY 8 WEEKS)
     Route: 042
     Dates: start: 20180924
  14. REACTINE                           /00884302/ [Concomitant]
     Active Substance: CETIRIZINE HYDROCHLORIDE
     Dosage: UNK

REACTIONS (23)
  - Neutrophil count increased [Unknown]
  - Red cell distribution width increased [Unknown]
  - Blood pressure fluctuation [Unknown]
  - Condition aggravated [Unknown]
  - Blister [Recovered/Resolved]
  - Carbon dioxide decreased [Unknown]
  - Mean cell haemoglobin concentration decreased [Unknown]
  - Musculoskeletal stiffness [Unknown]
  - Pain in extremity [Unknown]
  - Hidradenitis [Not Recovered/Not Resolved]
  - Joint swelling [Unknown]
  - International normalised ratio increased [Unknown]
  - Pyrexia [Recovered/Resolved]
  - Arthritis [Unknown]
  - Prothrombin level increased [Unknown]
  - Weight decreased [Unknown]
  - Mobility decreased [Unknown]
  - Urinary tract infection [Unknown]
  - Arthralgia [Unknown]
  - Chills [Unknown]
  - Pyoderma [Recovering/Resolving]
  - Product use issue [Unknown]
  - Muscular dystrophy [Unknown]

NARRATIVE: CASE EVENT DATE: 20180307
